FAERS Safety Report 5084413-3 (Version None)
Quarter: 2006Q3

REPORT INFORMATION
  Report Type: 
  Country: None (occurrence: None)
  Receive Date: 20060816
  Receipt Date: 20060803
  Transmission Date: 20061208
  Serious: Yes (Hospitalization)
  Sender: FDA-Public Use
  Company Number: 2006VX000457

PATIENT
  Age: 55 Year
  Sex: Female
  Weight: 70.7611 kg

DRUGS (9)
  1. INTERFERON  ALFACON-1 [Suspect]
     Indication: HEPATITIS C
     Dosage: 15 UG; QD; SC
     Route: 058
     Dates: start: 20060417, end: 20060514
  2. RIBAVIRIN [Concomitant]
  3. ESTRATEST [Concomitant]
  4. ADVAIR DISKUS 100/50 [Concomitant]
  5. FUROSEMIDE [Concomitant]
  6. CYMBALTA [Concomitant]
  7. CETIRIZINE [Concomitant]
  8. LEVAQUIN [Concomitant]
  9. HYDROCODONE BITARTRATE [Concomitant]

REACTIONS (5)
  - FATIGUE [None]
  - HAEMOGLOBIN DECREASED [None]
  - HEADACHE [None]
  - MUSCLE ABSCESS [None]
  - NAUSEA [None]
